FAERS Safety Report 6299164-7 (Version None)
Quarter: 2009Q3

REPORT INFORMATION
  Report Type: 
  Country: None (occurrence: None)
  Receive Date: 20090806
  Receipt Date: 20090727
  Transmission Date: 20100115
  Serious: Yes (Other)
  Sender: FDA-Public Use
  Company Number: ES-JNJFOC-20090709989

PATIENT
  Age: 73 Year
  Sex: Female

DRUGS (4)
  1. REMICADE [Suspect]
     Indication: RHEUMATOID ARTHRITIS
     Route: 042
  2. GLUCOCORTICOID [Concomitant]
  3. METHOTREXATE [Concomitant]
  4. NSAIDS [Concomitant]

REACTIONS (1)
  - DISSEMINATED TUBERCULOSIS [None]
